FAERS Safety Report 7356230-2 (Version None)
Quarter: 2011Q1

REPORT INFORMATION
  Report Type: 
  Country: None (occurrence: None)
  Receive Date: 20110316
  Receipt Date: 20100927
  Transmission Date: 20110831
  Serious: Yes (Other)
  Sender: FDA-Public Use
  Company Number: US-BAYER-201016118NA

PATIENT
  Sex: Female
  Weight: 54.422 kg

DRUGS (2)
  1. YAZ [Suspect]
     Indication: ACNE
     Route: 048
  2. YASMIN [Suspect]
     Indication: ACNE
     Dosage: UNK
     Route: 048
     Dates: start: 20050801, end: 20081101

REACTIONS (10)
  - OVARIAN CYST [None]
  - PAIN [None]
  - VOMITING [None]
  - ABDOMINAL PAIN UPPER [None]
  - GALLBLADDER INJURY [None]
  - RENAL DISORDER [None]
  - CHOLECYSTITIS CHRONIC [None]
  - CHOLELITHIASIS [None]
  - PLEURITIC PAIN [None]
  - NAUSEA [None]
